FAERS Safety Report 5918336-1 (Version None)
Quarter: 2008Q4

REPORT INFORMATION
  Report Type: 
  Country: None (occurrence: None)
  Receive Date: 20081010
  Receipt Date: 20080925
  Transmission Date: 20090506
  Serious: Yes (Hospitalization)
  Sender: FDA-Public Use
  Company Number: DSA_32467_2008

PATIENT
  Sex: Female
  Weight: 205.4795 kg

DRUGS (8)
  1. ENALAPRIL MALEATE [Suspect]
     Indication: HYPERTENSION
     Dosage: 20 MG BID ORAL
     Route: 048
     Dates: start: 19930101, end: 20080719
  2. FELODIPINE [Suspect]
     Indication: HYPERTENSION
     Dosage: 5 MG BID ORAL
     Route: 048
     Dates: start: 19930101, end: 20080724
  3. HYDROCHLOROTHIAZIDE [Suspect]
     Indication: HYPERTENSION
     Dosage: 25 MG QD ORAL
     Route: 048
     Dates: start: 19930101
  4. BLINDED THERAPY [Suspect]
     Indication: OBESITY
     Dosage: DF ORAL
     Route: 048
     Dates: start: 20080625, end: 20080714
  5. ACETYLSALICYLIC ACID SRT [Concomitant]
  6. TYLENOL [Concomitant]
  7. COD-LIVER OIL [Concomitant]
  8. GERITOL [Concomitant]

REACTIONS (2)
  - ANXIETY [None]
  - DYSPNOEA [None]
